FAERS Safety Report 10089691 (Version 1)
Quarter: 2014Q2

REPORT INFORMATION
  Report Type: Spontaneous
  Country: US (occurrence: US)
  Receive Date: 20140421
  Receipt Date: 20140421
  Transmission Date: 20141212
  Serious: Yes (Hospitalization, Other)
  Sender: FDA-Public Use
  Company Number: US-ACTAVIS-2014-07428

PATIENT
  Age: 37 Year
  Sex: Female

DRUGS (3)
  1. PROPYLTHIOURACIL (AELLC) [Suspect]
     Indication: BASEDOW^S DISEASE
     Dosage: 50 MG, Q8H
     Route: 065
  2. METHIMAZOLE [Suspect]
     Indication: BASEDOW^S DISEASE
     Dosage: 10 MG, BID
     Route: 065
  3. ATENOLOL [Concomitant]
     Indication: PRODUCT USED FOR UNKNOWN INDICATION
     Dosage: 10 MG, DAILY
     Route: 065

REACTIONS (5)
  - Febrile neutropenia [Recovered/Resolved]
  - Ecthyma [Recovering/Resolving]
  - Staphylococcal bacteraemia [Recovering/Resolving]
  - Oropharyngeal pain [Recovering/Resolving]
  - Maternal exposure during pregnancy [Recovering/Resolving]
